FAERS Safety Report 19064551 (Version 2)
Quarter: 2021Q2

REPORT INFORMATION
  Report Type: Spontaneous
  Country: US (occurrence: US)
  Receive Date: 20210326
  Receipt Date: 20210504
  Transmission Date: 20210717
  Serious: Yes (Other)
  Sender: FDA-Public Use
  Company Number: US-MALLINCKRODT PHARMACEUTICALS-T202100972

PATIENT
  Sex: Female
  Weight: 138 kg

DRUGS (3)
  1. H.P. ACTHAR [Suspect]
     Active Substance: CORTICOTROPIN
     Indication: POLYMYOSITIS
     Dosage: 80 UNITS, TWICE PER WEEK
     Route: 058
     Dates: start: 2021, end: 2021
  2. H.P. ACTHAR [Suspect]
     Active Substance: CORTICOTROPIN
     Indication: DERMATOMYOSITIS
     Dosage: 80 UNITS, EVERY MONDAY, WEDNESDAY, AND FRIDAY
     Route: 058
     Dates: start: 20210115, end: 2021
  3. H.P. ACTHAR [Suspect]
     Active Substance: CORTICOTROPIN
     Indication: ANKYLOSING SPONDYLITIS

REACTIONS (6)
  - Polymyositis [Unknown]
  - Asthenia [Unknown]
  - Injection site bruising [Not Recovered/Not Resolved]
  - Dermatomyositis [Unknown]
  - Condition aggravated [Unknown]
  - Product dose omission issue [Not Recovered/Not Resolved]

NARRATIVE: CASE EVENT DATE: 2021
